FAERS Safety Report 5289076-X (Version None)
Quarter: 2007Q1

REPORT INFORMATION
  Report Type: 
  Country: None (occurrence: None)
  Receive Date: 20070122
  Receipt Date: 20061121
  Transmission Date: 20070707
  Serious: Yes (Hospitalization)
  Sender: FDA-Public Use
  Company Number: 2006-150854-NL

PATIENT
  Sex: Female

DRUGS (1)
  1. PUREGON [Suspect]

REACTIONS (1)
  - OVARIAN HYPERSTIMULATION SYNDROME [None]
